FAERS Safety Report 7540000-6 (Version None)
Quarter: 2011Q2

REPORT INFORMATION
  Report Type: 
  Country: None (occurrence: None)
  Receive Date: 20110610
  Receipt Date: 20110603
  Transmission Date: 20111010
  Serious: Yes (Hospitalization)
  Sender: FDA-Public Use
  Company Number: US-ACTELION-A-US2011-49078

PATIENT

DRUGS (5)
  1. REVATIO [Concomitant]
  2. TYVASO [Concomitant]
  3. TRACLEER [Suspect]
     Indication: PULMONARY ARTERIAL HYPERTENSION
     Dosage: UNK
     Route: 048
     Dates: start: 20090320
  4. TRACLEER [Suspect]
     Dosage: 125
     Route: 048
  5. TRACLEER [Suspect]
     Dosage: 62.5
     Route: 048

REACTIONS (3)
  - DYSPNOEA [None]
  - OXYGEN SATURATION DECREASED [None]
  - ASTHMA [None]
